FAERS Safety Report 4367035-9 (Version None)
Quarter: 2004Q2

REPORT INFORMATION
  Report Type: 
  Country: None (occurrence: None)
  Receive Date: 20040527
  Receipt Date: 20040527
  Transmission Date: 20050107
  Serious: Yes (Life-Threatening, Hospitalization, Disabling, Other)
  Sender: FDA-Public Use
  Company Number: None

PATIENT
  Sex: Male
  Weight: 81.6475 kg

DRUGS (7)
  1. DURAGESIC [Suspect]
     Indication: NERVE INJURY
     Dosage: 75 MG EVERY 72 HR NOW 10 MG/325 ANY TIME
  2. DURAGESIC [Suspect]
     Indication: REFLEX SYMPATHETIC DYSTROPHY
     Dosage: 75 MG EVERY 72 HR NOW 10 MG/325 ANY TIME
  3. DURAGESIC [Suspect]
     Indication: SPINAL FUSION ACQUIRED
     Dosage: 75 MG EVERY 72 HR NOW 10 MG/325 ANY TIME
  4. DURAGESIC [Suspect]
  5. DURAGESIC [Suspect]
  6. DURAGESIC [Suspect]
  7. DURAGESIC [Suspect]

REACTIONS (6)
  - DRUG INEFFECTIVE [None]
  - DRUG WITHDRAWAL SYNDROME [None]
  - FAMILY STRESS [None]
  - SLEEP DISORDER [None]
  - STOMACH DISCOMFORT [None]
  - TRISMUS [None]
